FAERS Safety Report 5834648-4 (Version None)
Quarter: 2008Q3

REPORT INFORMATION
  Report Type: 
  Country: None (occurrence: None)
  Receive Date: 20080801
  Receipt Date: 20080716
  Transmission Date: 20090109
  Serious: Yes (Death)
  Sender: FDA-Public Use
  Company Number: 2008AL008407

PATIENT
  Age: 84 Year
  Sex: Female
  Weight: 49.8957 kg

DRUGS (1)
  1. DIGOXIN [Suspect]
     Indication: HEART RATE INCREASED
     Dosage: UNK, DAILY, PO
     Route: 048
     Dates: start: 20071029, end: 20080410

REACTIONS (2)
  - ADVERSE EVENT [None]
  - CARDIAC ARREST [None]
